FAERS Safety Report 4691003-0 (Version None)
Quarter: 2005Q2

REPORT INFORMATION
  Report Type: 
  Country: None (occurrence: None)
  Receive Date: 20050610
  Receipt Date: 20050528
  Transmission Date: 20051028
  Serious: Yes (Life-Threatening)
  Sender: FDA-Public Use
  Company Number: 2005082000

PATIENT
  Age: 40 Year
  Sex: Female

DRUGS (1)
  1. DALACINE (CLINDAMYCIN HYDROCHLORIDE) [Suspect]
     Indication: DECUBITUS ULCER
     Dosage: INTRAMUSCULAR
     Route: 030

REACTIONS (3)
  - ABNORMAL FAECES [None]
  - DIARRHOEA [None]
  - HAEMATOCHEZIA [None]
